FAERS Safety Report 8780174 (Version 1)
Quarter: 2012Q4

REPORT INFORMATION
  Report Type: Spontaneous
  Country: GB (occurrence: None)
  Receive Date: 20120829
  Receipt Date: 20120829
  Transmission Date: 20130627
  Serious: Yes (Other)
  Sender: FDA-Public Use
  Company Number: 2012-01267

PATIENT
  Age: 47 Year
  Sex: Male
  Weight: 105 kg

DRUGS (3)
  1. SIMVASTATIN (UNKNOWN) [Suspect]
     Indication: HYPERCHOLESTEROLEMIA
     Dosage: 40 mg  (40 mg, 1 in 1 D), Oral
     Route: 048
     Dates: start: 20050323
  2. AMLODIPINE  (UNKNOWN) [Concomitant]
  3. RAMIPRIL (UNKNOWN) [Concomitant]

REACTIONS (1)
  - Cataract [None]
